FAERS Safety Report 24704315 (Version 2)
Quarter: 2025Q1

REPORT INFORMATION
  Report Type: Spontaneous
  Country: US (occurrence: US)
  Receive Date: 20241206
  Receipt Date: 20250214
  Transmission Date: 20250408
  Serious: Yes (Other)
  Sender: SANOFI AVENTIS
  Company Number: US-SA-2024SA358753

PATIENT
  Age: 73 Year
  Sex: Female

DRUGS (19)
  1. DUPIXENT [Suspect]
     Active Substance: DUPILUMAB
     Indication: Dermatitis atopic
     Dosage: 300 MG, QOW
     Route: 058
  2. AMLODIPINE BESYLATE [Concomitant]
     Active Substance: AMLODIPINE BESYLATE
  3. ATROPINE SULFATE [Concomitant]
     Active Substance: ATROPINE SULFATE
  4. CYCLOBENZAPRINE [Concomitant]
     Active Substance: CYCLOBENZAPRINE
  5. DONEPEZIL HYDROCHLORIDE [Concomitant]
     Active Substance: DONEPEZIL HYDROCHLORIDE
  6. DORZOLAMIDE [Concomitant]
     Active Substance: DORZOLAMIDE
  7. DOXYCYCLINE [Concomitant]
     Active Substance: DOXYCYCLINE
  8. ERYTHROMYCIN [Concomitant]
     Active Substance: ERYTHROMYCIN
  9. FUROSEMIDE [Concomitant]
     Active Substance: FUROSEMIDE
  10. LINZESS [Concomitant]
     Active Substance: LINACLOTIDE
  11. LOSARTAN POTASSIUM [Concomitant]
     Active Substance: LOSARTAN POTASSIUM
  12. LOVASTATIN [Concomitant]
     Active Substance: LOVASTATIN
  13. MAGNESIUM [Concomitant]
     Active Substance: MAGNESIUM
  14. MEMANTINE [Concomitant]
     Active Substance: MEMANTINE
  15. MOUNJARO [Concomitant]
     Active Substance: TIRZEPATIDE
  16. MOXIFLOXACIN [Concomitant]
     Active Substance: MOXIFLOXACIN
  17. OMEPRAZOLE [Concomitant]
     Active Substance: OMEPRAZOLE
  18. ROCKLATAN [Concomitant]
     Active Substance: LATANOPROST\NETARSUDIL MESYLATE
  19. NOVOLOG [Concomitant]
     Active Substance: INSULIN ASPART

REACTIONS (10)
  - Rheumatoid arthritis [Not Recovered/Not Resolved]
  - Diabetes mellitus [Not Recovered/Not Resolved]
  - Dyspepsia [Not Recovered/Not Resolved]
  - Biliary cyst [Not Recovered/Not Resolved]
  - Anxiety [Not Recovered/Not Resolved]
  - Dermatitis atopic [Not Recovered/Not Resolved]
  - Skin fissures [Not Recovered/Not Resolved]
  - Dry skin [Not Recovered/Not Resolved]
  - Pruritus [Not Recovered/Not Resolved]
  - Sleep disorder due to a general medical condition [Not Recovered/Not Resolved]

NARRATIVE: CASE EVENT DATE: 20240101
